FAERS Safety Report 4433439-9 (Version None)
Quarter: 2004Q3

REPORT INFORMATION
  Report Type: 
  Country: None (occurrence: None)
  Receive Date: 20040826
  Receipt Date: 20040727
  Transmission Date: 20050211
  Serious: Yes (Life-Threatening, Hospitalization)
  Sender: FDA-Public Use
  Company Number: US-BRISTOL-MYERS SQUIBB COMPANY-12651691

PATIENT
  Age: 50 Year
  Sex: Male
  Weight: 66 kg

DRUGS (9)
  1. CETUXIMAB [Suspect]
     Indication: COLON CANCER METASTATIC
     Dosage: 1ST DOSE, INFUSED AT 3.2 CC/MIN (765 MG INTENDED, 35 MG DELIVERED); LOT 03C00519, EXP 8/05
     Route: 042
     Dates: start: 20040701, end: 20040701
  2. TYLENOL [Concomitant]
     Indication: PREMEDICATION
     Dosage: GIVEN 30 MINUTES PRIOR TO CETUXIMAB
     Route: 048
     Dates: start: 20040701, end: 20040701
  3. BENADRYL [Concomitant]
     Indication: PREMEDICATION
     Dosage: GIVEN 30 MINUTES BEFORE CETUXIMAB
     Route: 042
     Dates: start: 20040701, end: 20040701
  4. SEPTRA DS [Concomitant]
     Dosage: 3 DAYS PRIOR TO RX
     Dates: start: 20040701
  5. MORPHINE [Concomitant]
  6. LORAZEPAM [Concomitant]
  7. PRILOSEC [Concomitant]
  8. TIZANIDINE HCL [Concomitant]
  9. MEGACE [Concomitant]

REACTIONS (5)
  - ASTHENIA [None]
  - HYPERHIDROSIS [None]
  - HYPOTENSION [None]
  - PALLOR [None]
  - SHOCK [None]
